FAERS Safety Report 10100570 (Version 1)
Quarter: 2014Q2

REPORT INFORMATION
  Report Type: Spontaneous
  Country: RO (occurrence: RO)
  Receive Date: 20140423
  Receipt Date: 20140423
  Transmission Date: 20141212
  Serious: Yes (Hospitalization)
  Sender: FDA-Public Use
  Company Number: RO-GLAXOSMITHKLINE-B0988015A

PATIENT
  Age: 17 Year
  Sex: Female

DRUGS (3)
  1. ZINNAT [Suspect]
     Indication: TRACHEITIS
     Route: 048
     Dates: start: 20140211, end: 20140211
  2. EURESPAL [Concomitant]
     Dosage: 80MG PER DAY
     Route: 065
     Dates: start: 20140208, end: 20140211
  3. EXIGAN [Concomitant]
     Dosage: 210MG PER DAY
     Route: 065
     Dates: start: 20140211

REACTIONS (6)
  - Sneezing [Recovered/Resolved]
  - Chills [Recovered/Resolved]
  - Headache [Recovered/Resolved]
  - Rash erythematous [Recovered/Resolved]
  - Cyanosis [Recovered/Resolved]
  - Syncope [Recovered/Resolved]
